FAERS Safety Report 21895350 (Version 13)
Quarter: 2025Q2

REPORT INFORMATION
  Report Type: Spontaneous
  Country: US (occurrence: US)
  Receive Date: 20230123
  Receipt Date: 20250506
  Transmission Date: 20250716
  Serious: Yes (Other)
  Sender: SANOFI AVENTIS
  Company Number: US-SA-SAC20230120000611

PATIENT
  Age: 74 Year
  Sex: Male

DRUGS (6)
  1. DUPIXENT [Suspect]
     Active Substance: DUPILUMAB
     Indication: Pulmonary vasculitis
     Dosage: 300 MG, QOW
     Route: 058
     Dates: start: 20221216
  2. DUPIXENT [Suspect]
     Active Substance: DUPILUMAB
     Indication: Rhinitis allergic
  3. DUPIXENT [Suspect]
     Active Substance: DUPILUMAB
     Indication: Asthma
  4. DUPIXENT [Suspect]
     Active Substance: DUPILUMAB
     Indication: Eosinophilic granulomatosis with polyangiitis
  5. RABEPRAZOLE [Suspect]
     Active Substance: RABEPRAZOLE
  6. MESTINON [Concomitant]
     Active Substance: PYRIDOSTIGMINE BROMIDE
     Route: 065

REACTIONS (29)
  - Myasthenia gravis [Unknown]
  - Feeling jittery [Unknown]
  - Back pain [Unknown]
  - Diplopia [Unknown]
  - Condition aggravated [Unknown]
  - Musculoskeletal stiffness [Unknown]
  - Asthenia [Unknown]
  - Headache [Unknown]
  - Paraesthesia [Unknown]
  - Hypoaesthesia [Unknown]
  - Vision blurred [Unknown]
  - Eye irritation [Unknown]
  - Arthralgia [Unknown]
  - Visual impairment [Unknown]
  - Constipation [Unknown]
  - Drug intolerance [Unknown]
  - Rhinorrhoea [Unknown]
  - Fatigue [Unknown]
  - Gastrooesophageal reflux disease [Unknown]
  - Cough [Unknown]
  - Eyelid skin dryness [Unknown]
  - Salivary hypersecretion [Unknown]
  - Erythema of eyelid [Unknown]
  - Oropharyngeal pain [Unknown]
  - Gastritis [Unknown]
  - Eosinophil count increased [Unknown]
  - Product use in unapproved indication [Unknown]
  - Therapeutic response decreased [Unknown]
  - Drug ineffective [Unknown]

NARRATIVE: CASE EVENT DATE: 20221216
